FAERS Safety Report 4761445-3 (Version None)
Quarter: 2005Q3

REPORT INFORMATION
  Report Type: 
  Country: None (occurrence: None)
  Receive Date: 20050906
  Receipt Date: 20050826
  Transmission Date: 20060218
  Serious: Yes (Hospitalization)
  Sender: FDA-Public Use
  Company Number: PHBS2005BR12781

PATIENT
  Age: 16 Year
  Sex: Female

DRUGS (3)
  1. OCTREOTIDE ACETATE [Suspect]
     Indication: PITUITARY TUMOUR BENIGN
     Dosage: 100 UG, TID
     Route: 065
  2. OCTREOTIDE ACETATE [Suspect]
     Dosage: 300 UG, TID
  3. OCTREOTIDE ACETATE [Suspect]
     Dosage: 1800 UG/DAY
     Route: 065

REACTIONS (7)
  - ANXIETY [None]
  - DRUG DEPENDENCE [None]
  - DRUG TOLERANCE [None]
  - HEADACHE [None]
  - INSOMNIA [None]
  - IRRITABILITY [None]
  - LACRIMATION INCREASED [None]
